FAERS Safety Report 8850712 (Version 3)
Quarter: 2013Q1

REPORT INFORMATION
  Report Type: Spontaneous
  Country: FR (occurrence: FR)
  Receive Date: 20121019
  Receipt Date: 20130103
  Transmission Date: 20140127
  Serious: Yes (Other)
  Sender: FDA-Public Use
  Company Number: FR-GILEAD-2012-0063201

PATIENT
  Age: 42 None
  Sex: Female

DRUGS (11)
  1. AMBRISENTAN [Suspect]
     Indication: PULMONARY ARTERIAL HYPERTENSION
     Dosage: 5MG PER DAY
     Route: 048
     Dates: start: 20120101, end: 20120714
  2. TELZIR [Suspect]
     Indication: HIV INFECTION CDC CATEGORY C3
     Route: 048
     Dates: start: 20110328, end: 20120626
  3. COLCHICINE [Suspect]
     Indication: PRODUCT USED FOR UNKNOWN INDICATION
     Dosage: 1UNIT TWICE PER DAY
     Route: 048
     Dates: start: 201204
  4. NORVIR [Suspect]
     Indication: HIV INFECTION CDC CATEGORY C3
     Dosage: 1UNIT PER DAY
     Route: 048
     Dates: start: 20110308, end: 20110315
  5. NORVIR [Suspect]
     Dosage: 1 UNK, UNK
     Route: 048
     Dates: start: 20110328, end: 20120626
  6. TRUVADA [Concomitant]
     Indication: HIV INFECTION CDC CATEGORY C3
     Route: 048
     Dates: start: 20060823, end: 20120710
  7. PREVISCAN                          /00789001/ [Concomitant]
     Indication: PULMONARY ARTERIAL HYPERTENSION
     Dosage: .75UNIT PER DAY
     Route: 048
  8. VIRAMUNE [Concomitant]
     Indication: HIV INFECTION CDC CATEGORY C3
     Dates: start: 20120626, end: 20120710
  9. SEROPRAM                           /00582602/ [Concomitant]
     Dosage: 1UNIT PER DAY
     Route: 048
  10. XANAX [Concomitant]
     Dosage: 1UNIT PER DAY
     Route: 048
  11. STILNOX [Concomitant]
     Dosage: 1UNIT PER DAY
     Route: 048

REACTIONS (4)
  - Dysgeusia [Recovered/Resolved]
  - Haemolysis [Unknown]
  - Anaemia [Recovered/Resolved]
  - Nausea [Unknown]
